FAERS Safety Report 25791532 (Version 1)
Quarter: 2025Q3

REPORT INFORMATION
  Report Type: Spontaneous
  Country: NP (occurrence: NP)
  Receive Date: 20250911
  Receipt Date: 20250911
  Transmission Date: 20251020
  Serious: Yes (Life-Threatening, Hospitalization)
  Sender: TORRENT PHARMA INC.
  Company Number: NP-MLMSERVICE-20250827-PI626556-00176-1

PATIENT
  Age: 55 Year
  Sex: Male

DRUGS (1)
  1. HYDROCHLOROTHIAZIDE\LOSARTAN [Suspect]
     Active Substance: HYDROCHLOROTHIAZIDE\LOSARTAN
     Indication: Hypertension
     Dosage: IN THE EVENING
     Route: 065
     Dates: start: 202503, end: 2025

REACTIONS (1)
  - Pancreatitis acute [Recovered/Resolved]

NARRATIVE: CASE EVENT DATE: 20250101
